FAERS Safety Report 5504048-5 (Version None)
Quarter: 2007Q4

REPORT INFORMATION
  Report Type: 
  Country: None (occurrence: None)
  Receive Date: 20071101
  Receipt Date: 20071031
  Transmission Date: 20080405
  Serious: Yes (Hospitalization)
  Sender: FDA-Public Use
  Company Number: US-BRISTOL-MYERS SQUIBB COMPANY-13965538

PATIENT

DRUGS (2)
  1. CISPLATIN [Suspect]
     Indication: SQUAMOUS CELL CARCINOMA
     Dosage: BEGAN STUDY DRUG ON AN UNKNOWN DATE,INTERRUPTED AND RESTARTED ON 10-JUL-2006
  2. RADIOTHERAPY [Suspect]
     Indication: SQUAMOUS CELL CARCINOMA
     Dosage: BEGAN STUDY DRUG ON AN UNKNOWN DATE,INTERRUPTED AND RESTARTED ON 10-JUL-2006

REACTIONS (2)
  - DEHYDRATION [None]
  - URINARY TRACT INFECTION [None]
